FAERS Safety Report 10076161 (Version 3)
Quarter: 2014Q3

REPORT INFORMATION
  Report Type: Spontaneous
  Country: US (occurrence: None)
  Receive Date: 20140410
  Receipt Date: 20140728
  Transmission Date: 20150326
  Serious: Yes (Hospitalization, Other)
  Sender: FDA-Public Use
  Company Number: UTC-046832

PATIENT
  Age: 64 Year
  Sex: Male
  Weight: 92.5 kg

DRUGS (3)
  1. LETAIRIS [Concomitant]
     Active Substance: AMBRISENTAN
  2. TYVASO [Suspect]
     Active Substance: TREPROSTINIL
     Indication: PULMONARY ARTERIAL HYPERTENSION
     Route: 055
     Dates: start: 20131028
  3. ADCIRCA [Concomitant]
     Active Substance: TADALAFIL

REACTIONS (7)
  - Dyspnoea [None]
  - Interstitial lung disease [None]
  - Oxygen saturation decreased [None]
  - Hypoxia [None]
  - Muscle hypertrophy [None]
  - Obstructive airways disorder [None]
  - Pulmonary fibrosis [None]

NARRATIVE: CASE EVENT DATE: 20140318
